FAERS Safety Report 8102876-3 (Version None)
Quarter: 2012Q1

REPORT INFORMATION
  Report Type: 
  Country: None (occurrence: None)
  Receive Date: 20120127
  Receipt Date: 20120113
  Transmission Date: 20120608
  Serious: Yes (Hospitalization, Other)
  Sender: FDA-Public Use
  Company Number: 20120010

PATIENT
  Age: 40 Year
  Sex: Female

DRUGS (2)
  1. VENOFER [Suspect]
     Indication: ANAEMIA
     Dosage: UNK DOSE PRIOR TO
     Dates: start: 20111227
  2. VENOFER [Suspect]
     Indication: ANAEMIA
     Dosage: 2 DOSES INTRAVENOUS
     Route: 042
     Dates: start: 20111231

REACTIONS (3)
  - CAESAREAN SECTION [None]
  - MATERNAL EXPOSURE DURING PREGNANCY [None]
  - JUGULAR VEIN THROMBOSIS [None]
